FAERS Safety Report 4287742-6 (Version None)
Quarter: 2004Q1

REPORT INFORMATION
  Report Type: 
  Country: None (occurrence: None)
  Receive Date: 20040205
  Receipt Date: 20040112
  Transmission Date: 20041129
  Serious: No
  Sender: FDA-Public Use
  Company Number: A04200400033

PATIENT
  Sex: Male

DRUGS (1)
  1. ARIXTRA [Suspect]
     Dosage: 2.5 MG OD SUBCUTANEOUS
     Route: 058

REACTIONS (1)
  - GASTRIC HAEMORRHAGE [None]
